FAERS Safety Report 9529692 (Version 1)
Quarter: 2013Q3

REPORT INFORMATION
  Report Type: Spontaneous
  Country: US (occurrence: US)
  Receive Date: 20130917
  Receipt Date: 20130917
  Transmission Date: 20140515
  Serious: Yes (Hospitalization)
  Sender: FDA-Public Use
  Company Number: US-GLAXOSMITHKLINE-A1041775A

PATIENT
  Age: 69 Year
  Sex: Male

DRUGS (2)
  1. ADVAIR [Suspect]
     Indication: PRODUCT USED FOR UNKNOWN INDICATION
     Route: 055
  2. VENTOLIN [Concomitant]
     Dates: start: 201207

REACTIONS (2)
  - Hospitalisation [Unknown]
  - Bed rest [Not Recovered/Not Resolved]
